FAERS Safety Report 4781554-2 (Version None)
Quarter: 2005Q3

REPORT INFORMATION
  Report Type: 
  Country: None (occurrence: None)
  Receive Date: 20050928
  Receipt Date: 20040711
  Transmission Date: 20060218
  Serious: Yes (Death, Life-Threatening)
  Sender: FDA-Public Use
  Company Number: US-ROCHE-374205

PATIENT
  Age: 59 Year
  Sex: Male

DRUGS (3)
  1. PEGASYS [Suspect]
     Dosage: ROUTE:  INJECTABLE.
     Route: 050
     Dates: start: 20040605, end: 20040915
  2. COPEGUS [Suspect]
     Dosage: 3 MORE TABLETS WERE TAKEN AFTER DINNER.
     Route: 048
     Dates: start: 20040605, end: 20040915
  3. ANAPROX [Suspect]
     Route: 065

REACTIONS (11)
  - COMPLETED SUICIDE [None]
  - DEPRESSION [None]
  - DISTURBANCE IN ATTENTION [None]
  - FURUNCLE [None]
  - GUN SHOT WOUND [None]
  - MOOD SWINGS [None]
  - NO ADVERSE EFFECT [None]
  - OVERDOSE [None]
  - PRURITUS [None]
  - SUICIDAL IDEATION [None]
  - TINNITUS [None]
